FAERS Safety Report 8875417 (Version 2)
Quarter: 2013Q1

REPORT INFORMATION
  Report Type: Report from Study
  Country: JP (occurrence: JP)
  Receive Date: 20121023
  Receipt Date: 20130306
  Transmission Date: 20140127
  Serious: Yes (Hospitalization)
  Sender: FDA-Public Use
  Company Number: JP-009507513-1208JPN005511

PATIENT
  Age: 56 Year
  Sex: Male
  Weight: 69 kg

DRUGS (13)
  1. PEGINTRON [Suspect]
     Indication: CHRONIC HEPATITIS C
     Dosage: 1.5 MICROGRAM PER KILOGRAM, QW
     Route: 058
     Dates: start: 20120619, end: 20120731
  2. PEGINTRON [Suspect]
     Dosage: 0.7MICROGRAM PER KILOGRAM, QW
     Route: 058
     Dates: start: 20120810, end: 20120823
  3. PEGINTRON [Suspect]
     Dosage: 0.9MICROGRAM PER KILOGRAM,QW
     Route: 058
     Dates: start: 20120824, end: 20120906
  4. PEGINTRON [Suspect]
     Dosage: 1.0 MICROGRAM PER KILOGRAM,QW
     Route: 058
     Dates: start: 20120907
  5. REBETOL [Suspect]
     Indication: CHRONIC HEPATITIS C
     Dosage: 800 MG, QD
     Route: 048
     Dates: start: 20120619, end: 20120723
  6. REBETOL [Suspect]
     Dosage: 400 MG, QD
     Route: 048
     Dates: start: 20120724, end: 20120731
  7. REBETOL [Suspect]
     Dosage: 200 MG, QD
     Route: 048
     Dates: start: 20120801, end: 20120803
  8. REBETOL [Suspect]
     Dosage: 200 MG,QD
     Route: 048
     Dates: start: 20120810
  9. TELAVIC [Suspect]
     Indication: CHRONIC HEPATITIS C
     Dosage: 2250MG,QD
     Route: 048
     Dates: start: 20120619, end: 20120731
  10. CO DIO [Concomitant]
     Indication: HYPERTENSION
     Dosage: 1 DF, QD
     Route: 048
  11. NITROPEN [Concomitant]
     Indication: ANGINA PECTORIS
     Dosage: 0.3 MG/DAY AS NEEDED
     Route: 060
  12. WARFARIN [Concomitant]
     Indication: CEREBRAL INFARCTION
     Dosage: 2 MG, QD
     Route: 048
  13. NAUZELIN [Concomitant]
     Indication: PROPHYLAXIS
     Dosage: 30 MG, QD
     Route: 048
     Dates: start: 20120629

REACTIONS (2)
  - Anaemia [Recovered/Resolved]
  - Haemoglobin decreased [Recovered/Resolved]
